FAERS Safety Report 7606405-X (Version None)
Quarter: 2011Q3

REPORT INFORMATION
  Report Type: 
  Country: None (occurrence: None)
  Receive Date: 20110713
  Receipt Date: 20110701
  Transmission Date: 20111222
  Serious: Yes (Hospitalization)
  Sender: FDA-Public Use
  Company Number: GB-JNJFOC-20110612059

PATIENT
  Sex: Female
  Weight: 45.9 kg

DRUGS (2)
  1. HUMIRA [Concomitant]
     Dates: start: 20091002, end: 20110429
  2. REMICADE [Suspect]
     Indication: CROHN'S DISEASE
     Route: 042
     Dates: start: 20081208, end: 20090807

REACTIONS (1)
  - ANAPHYLACTIC REACTION [None]
